FAERS Safety Report 10240814 (Version 1)
Quarter: 2014Q2

REPORT INFORMATION
  Report Type: Report from Study
  Country: MY (occurrence: MY)
  Receive Date: 20140617
  Receipt Date: 20140617
  Transmission Date: 20141212
  Serious: Yes (Disabling)
  Sender: FDA-Public Use
  Company Number: MY-ROCHE-GNE267754

PATIENT
  Age: 51 Year
  Sex: Female
  Weight: 65.27 kg

DRUGS (2)
  1. VINORELBINE [Suspect]
     Indication: BREAST CANCER METASTATIC
     Dosage: 30 MG/M2, UNK
     Route: 065
     Dates: start: 20071226
  2. PLACEBO [Suspect]
     Indication: BREAST CANCER METASTATIC
     Route: 042
     Dates: start: 20071226

REACTIONS (1)
  - Obstruction gastric [Recovered/Resolved]
